FAERS Safety Report 12601649 (Version 1)
Quarter: 2016Q3

REPORT INFORMATION
  Report Type: Spontaneous
  Country: None (occurrence: None)
  Receive Date: 20160727
  Receipt Date: 20160727
  Transmission Date: 20161109
  Serious: Yes (Other)
  Sender: FDA-Public Use
  Company Number: None

PATIENT
  Age: 36 Year
  Sex: Female
  Weight: 45.36 kg

DRUGS (4)
  1. NASALCROM [Suspect]
     Active Substance: CROMOLYN SODIUM
     Indication: SEASONAL ALLERGY
     Route: 055
     Dates: start: 20160401, end: 20160720
  2. ARMOUR THYROID [Concomitant]
     Active Substance: THYROID, PORCINE
  3. NASALCROM [Suspect]
     Active Substance: CROMOLYN SODIUM
     Indication: RHINITIS ALLERGIC
     Route: 055
     Dates: start: 20160401, end: 20160720
  4. MULTIPLE VITAMINS AND MINERALS [Concomitant]

REACTIONS (3)
  - Platelet count decreased [None]
  - Neutrophil count decreased [None]
  - White blood cell count decreased [None]

NARRATIVE: CASE EVENT DATE: 20160720
